FAERS Safety Report 5306461-8 (Version None)
Quarter: 2007Q2

REPORT INFORMATION
  Report Type: 
  Country: None (occurrence: None)
  Receive Date: 20070424
  Receipt Date: 20070419
  Transmission Date: 20071010
  Serious: Yes (Hospitalization)
  Sender: FDA-Public Use
  Company Number: US-GENENTECH-237974

PATIENT
  Sex: Female
  Weight: 74 kg

DRUGS (3)
  1. BEVACIZUMAB [Suspect]
     Indication: BLADDER CANCER
     Dosage: 15 MG/KG, Q3W
     Route: 042
     Dates: start: 20061128
  2. CISPLATIN [Suspect]
     Indication: BLADDER CANCER
     Dosage: 50 MG/M2, Q3W
     Route: 042
     Dates: start: 20061128
  3. GEMCITABINE HCL [Suspect]
     Indication: BLADDER CANCER
     Dosage: 800 MG/M2, DAY1+8/Q3W
     Route: 042
     Dates: start: 20061128

REACTIONS (1)
  - CONFUSIONAL STATE [None]
